FAERS Safety Report 9257111 (Version 1)
Quarter: 2013Q1

REPORT INFORMATION
  Report Type: Spontaneous
  Country: US (occurrence: None)
  Receive Date: 20121212
  Receipt Date: 20121212
  Transmission Date: 20140127
  Serious: Yes (Hospitalization)
  Sender: FDA-Public Use
  Company Number: 1208USA011152

PATIENT
  Age: 55 Year
  Sex: Female

DRUGS (3)
  1. VICTRELIS (BOCEPREVIR) CAPSULE, 200 MG [Suspect]
     Indication: HEPATITIS C
     Route: 048
     Dates: start: 20120607
  2. REBETOL (RIBAVIRIN) CAPSULE [Concomitant]
  3. PEGASYS (PEGINTERFERON ALFA-2B) [Concomitant]

REACTIONS (3)
  - Haemoglobin decreased [None]
  - Pruritus [None]
  - Rash [None]
